FAERS Safety Report 11433115 (Version 1)
Quarter: 2015Q3

REPORT INFORMATION
  Report Type: Spontaneous
  Country: AT (occurrence: AT)
  Receive Date: 20150829
  Receipt Date: 20150829
  Transmission Date: 20151125
  Serious: Yes (Hospitalization)
  Sender: FDA-Public Use
  Company Number: AT-AMGEN-AUTSP2015082057

PATIENT
  Age: 79 Year
  Sex: Female

DRUGS (1)
  1. PROLIA [Suspect]
     Active Substance: DENOSUMAB
     Indication: OSTEOPOROSIS
     Dosage: UNK
     Route: 065
     Dates: start: 20150306

REACTIONS (16)
  - Oral disorder [Unknown]
  - Implant site inflammation [Unknown]
  - Rash [Unknown]
  - Sleep disorder [Unknown]
  - Vertigo [Unknown]
  - Alopecia [Unknown]
  - Dysphagia [Unknown]
  - Influenza [Unknown]
  - Headache [Unknown]
  - Dizziness [Unknown]
  - Balance disorder [Unknown]
  - Dry mouth [Unknown]
  - Malaise [Not Recovered/Not Resolved]
  - Abdominal distension [Unknown]
  - Pain in extremity [Unknown]
  - Hypoaesthesia [Unknown]

NARRATIVE: CASE EVENT DATE: 201503
